FAERS Safety Report 17437492 (Version 1)
Quarter: 2020Q1

REPORT INFORMATION
  Report Type: Spontaneous
  Country: FR (occurrence: FR)
  Receive Date: 20200219
  Receipt Date: 20200219
  Transmission Date: 20200409
  Serious: Yes (Life-Threatening, Other)
  Sender: FDA-Public Use
  Company Number: FR-ALLERGAN-2007855US

PATIENT
  Sex: Female
  Weight: 66 kg

DRUGS (5)
  1. BROMAZEPAM [Suspect]
     Active Substance: BROMAZEPAM
     Indication: POISONING DELIBERATE
     Route: 048
     Dates: start: 20191130, end: 20191130
  2. PARACETAMOL [Suspect]
     Active Substance: ACETAMINOPHEN
     Indication: POISONING DELIBERATE
     Route: 048
     Dates: start: 20191130, end: 20191130
  3. TRAMADOL HYDROCHLORIDE. [Suspect]
     Active Substance: TRAMADOL HYDROCHLORIDE
     Indication: POISONING DELIBERATE
     Route: 048
     Dates: start: 20191130, end: 20191130
  4. ESCITALOPRAM OXALATE - BP [Suspect]
     Active Substance: ESCITALOPRAM OXALATE
     Indication: POISONING DELIBERATE
     Route: 048
     Dates: start: 20191130, end: 20191130
  5. OMEPRAZOLE. [Suspect]
     Active Substance: OMEPRAZOLE
     Indication: POISONING DELIBERATE
     Route: 048
     Dates: start: 20191130, end: 20191130

REACTIONS (2)
  - Coma [Recovered/Resolved]
  - Respiratory failure [Recovered/Resolved]

NARRATIVE: CASE EVENT DATE: 20191130
